FAERS Safety Report 7126666-3 (Version None)
Quarter: 2010Q4

REPORT INFORMATION
  Report Type: 
  Country: None (occurrence: None)
  Receive Date: 20101129
  Receipt Date: 20101108
  Transmission Date: 20110411
  Serious: Yes (Disabling)
  Sender: FDA-Public Use
  Company Number: DE-ASTRAZENECA-2010SE53732

PATIENT
  Age: 96 Year
  Sex: Male

DRUGS (7)
  1. SEROQUEL [Suspect]
     Route: 048
     Dates: start: 20091104, end: 20091108
  2. FUROSEMIDE [Suspect]
     Route: 048
  3. BROMAZEPAM [Suspect]
     Route: 048
     Dates: start: 20000101, end: 20091111
  4. BROMAZEPAM [Suspect]
     Route: 048
     Dates: start: 20091112, end: 20091129
  5. PANTOPRAZOLE [Suspect]
     Route: 048
  6. NOVAMINSULFON [Suspect]
     Route: 048
     Dates: end: 20091104
  7. NOVAMINSULFON [Suspect]
     Route: 048
     Dates: start: 20091105, end: 20091117

REACTIONS (2)
  - DIZZINESS [None]
  - HYPOTENSION [None]
